FAERS Safety Report 11044192 (Version 4)
Quarter: 2015Q3

REPORT INFORMATION
  Report Type: Spontaneous
  Country: BR (occurrence: BR)
  Receive Date: 20150417
  Receipt Date: 20150721
  Transmission Date: 20151125
  Serious: Yes (Other)
  Sender: FDA-Public Use
  Company Number: BR-PFIZER INC-2015131217

PATIENT
  Age: 58 Year
  Sex: Female
  Weight: 62 kg

DRUGS (11)
  1. QUELATUS [Concomitant]
     Indication: ANAEMIA
     Route: 048
     Dates: start: 2014
  2. FLUOXETIN [Concomitant]
     Active Substance: FLUOXETINE HYDROCHLORIDE
     Indication: DEPRESSION
     Dosage: 20MG 1X/DAY
     Route: 048
  3. ATENOLOL. [Suspect]
     Active Substance: ATENOLOL
     Indication: HYPERTENSION
     Dosage: DAILY
     Route: 048
     Dates: end: 201501
  4. OMEPRAZOLE. [Suspect]
     Active Substance: OMEPRAZOLE
     Indication: GASTROOESOPHAGEAL REFLUX DISEASE
  5. LOSARTAN. [Concomitant]
     Active Substance: LOSARTAN
     Indication: HYPERTENSION
     Dosage: 50 MG
     Route: 048
     Dates: start: 201501
  6. TIBOLONE [Concomitant]
     Active Substance: TIBOLONE
     Indication: HORMONE REPLACEMENT THERAPY
     Dosage: 2.5 MG
     Route: 048
  7. METFORMIN [Suspect]
     Active Substance: METFORMIN HYDROCHLORIDE
     Indication: DIABETES MELLITUS
     Dosage: UNK
     Route: 048
     Dates: start: 2014
  8. ALENIA [Suspect]
     Active Substance: BUDESONIDE\FORMOTEROL FUMARATE
     Indication: ASTHMA
     Dosage: 12/400 MCG; TWO TIMES A DAY
     Route: 055
     Dates: start: 2006, end: 201506
  9. ALENIA [Suspect]
     Active Substance: BUDESONIDE\FORMOTEROL FUMARATE
     Dosage: 12/400 MCG;1 INHALATION PER DAY
     Route: 055
  10. OMEPRAZOLE. [Suspect]
     Active Substance: OMEPRAZOLE
     Indication: GASTRIC DISORDER
     Dosage: 20 MG, 1X/DAY
     Route: 048
  11. ALENIA [Suspect]
     Active Substance: BUDESONIDE\FORMOTEROL FUMARATE
     Dosage: SYMBICORT TURBUHALER 320/9MCG OD
     Route: 055
     Dates: start: 201506

REACTIONS (4)
  - Tachycardia [Recovering/Resolving]
  - Tremor [Recovered/Resolved]
  - Anaemia [Unknown]
  - Diabetes mellitus [Recovered/Resolved]

NARRATIVE: CASE EVENT DATE: 2009
